FAERS Safety Report 20323634 (Version 1)
Quarter: 2022Q1

REPORT INFORMATION
  Report Type: Spontaneous
  Country: US (occurrence: US)
  Receive Date: 20220111
  Receipt Date: 20220111
  Transmission Date: 20220423
  Serious: Yes (Death, Life-Threatening, Other)
  Sender: FDA-Public Use
  Company Number: US-AMGEN-USASP2022001984

PATIENT

DRUGS (1)
  1. BLINATUMOMAB [Suspect]
     Active Substance: BLINATUMOMAB
     Indication: Acute lymphocytic leukaemia
     Dosage: UNK
     Route: 065

REACTIONS (12)
  - Death [Fatal]
  - Acute graft versus host disease [Unknown]
  - Acute lymphocytic leukaemia recurrent [Unknown]
  - Acute myeloid leukaemia recurrent [Unknown]
  - Cytomegalovirus infection [Unknown]
  - Colitis [Unknown]
  - Pneumonitis [Unknown]
  - Lymphadenitis [Unknown]
  - Off label use [Unknown]
  - Adenovirus infection [Unknown]
  - Human herpesvirus 6 infection [Unknown]
  - Laboratory test abnormal [Unknown]
